FAERS Safety Report 18288399 (Version 1)
Quarter: 2020Q3

REPORT INFORMATION
  Report Type: Spontaneous
  Country: US (occurrence: US)
  Receive Date: 20200918
  Receipt Date: 20200918
  Transmission Date: 20201103
  Serious: Yes (Death)
  Sender: FDA-Public Use
  Company Number: None

PATIENT
  Age: 61 Year
  Sex: Male

DRUGS (1)
  1. REBIF REBIDOSE [Suspect]
     Active Substance: INTERFERON BETA-1A
     Dosage: OTHER FREQUENCY:OTHER;?
     Route: 058
     Dates: start: 201806, end: 202003

REACTIONS (1)
  - Death [None]

NARRATIVE: CASE EVENT DATE: 20200317
